FAERS Safety Report 9537337 (Version 1)
Quarter: 2013Q3

REPORT INFORMATION
  Report Type: Spontaneous
  Country: US (occurrence: US)
  Receive Date: 20130919
  Receipt Date: 20130919
  Transmission Date: 20140515
  Serious: No
  Sender: FDA-Public Use
  Company Number: US-009507513-1309USA006219

PATIENT
  Age: 67 Year
  Sex: Female

DRUGS (3)
  1. VICTRELIS [Suspect]
     Indication: HEPATITIS C
     Dosage: 800 MG, TID
     Route: 048
     Dates: start: 20130906, end: 20130908
  2. REBETOL [Suspect]
     Dosage: UNKNOWN
     Route: 048
     Dates: start: 2013
  3. PEGASYS [Suspect]
     Dosage: UNKNOWN
     Dates: start: 2013

REACTIONS (2)
  - Dysgeusia [Recovered/Resolved]
  - Vomiting [Recovered/Resolved]
